FAERS Safety Report 9436669 (Version 2)
Quarter: 2014Q2

REPORT INFORMATION
  Report Type: Spontaneous
  Country: FR (occurrence: FR)
  Receive Date: 20130802
  Receipt Date: 20140417
  Transmission Date: 20141212
  Serious: Yes (Other)
  Sender: FDA-Public Use
  Company Number: FR-TEVA-421641ISR

PATIENT
  Age: 60 Year
  Sex: Male

DRUGS (4)
  1. AZILECT [Suspect]
     Indication: PARKINSON^S DISEASE
     Dosage: 1 MILLIGRAM DAILY;
     Route: 048
     Dates: start: 201003
  2. REQUIP [Suspect]
     Indication: PARKINSON^S DISEASE
     Dosage: 16 MILLIGRAM DAILY; 12 MG MORNING + 4 MG EVENING
     Route: 048
  3. REQUIP [Suspect]
     Dosage: 12 MILLIGRAM DAILY;
     Route: 048
     Dates: start: 201103, end: 201401
  4. MODOPAR 62.5 (50 MG/12.5 MG) [Suspect]
     Indication: PARKINSON^S DISEASE
     Dosage: 3 DOSAGE FORMS DAILY;
     Route: 048
     Dates: start: 201103

REACTIONS (3)
  - Somnolence [Not Recovered/Not Resolved]
  - Sleep attacks [Unknown]
  - Insomnia [Not Recovered/Not Resolved]
